FAERS Safety Report 9171535 (Version 1)
Quarter: 2013Q1

REPORT INFORMATION
  Report Type: Spontaneous
  Country: ES (occurrence: None)
  Receive Date: 20130308
  Receipt Date: 20130308
  Transmission Date: 20140127
  Serious: Yes (Other)
  Sender: FDA-Public Use
  Company Number: ES-11963934

PATIENT
  Age: 84 Year
  Sex: Male

DRUGS (2)
  1. BSS INTRAOCULAR SOLUTION (BSS) [Suspect]
     Indication: CATARACT OPERATION
     Dosage: (INTRAOCULAR)
     Route: 031
  2. DUOVISC [Concomitant]

REACTIONS (3)
  - Toxic anterior segment syndrome [None]
  - Off label use [None]
  - Corneal oedema [None]
